FAERS Safety Report 4830031-9 (Version None)
Quarter: 2005Q4

REPORT INFORMATION
  Report Type: 
  Country: None (occurrence: None)
  Receive Date: 20051115
  Receipt Date: 20051115
  Transmission Date: 20060501
  Serious: Yes (Hospitalization)
  Sender: FDA-Public Use
  Company Number: None

PATIENT
  Age: 72 Year
  Sex: Male
  Weight: 142.8831 kg

DRUGS (8)
  1. FUROSEMIDE [Suspect]
     Indication: OEDEMA
     Dosage: 20MG BID, PO
     Route: 048
     Dates: start: 20050701, end: 20050901
  2. LISINOPRIL [Suspect]
     Indication: HYPERTENSION
     Dosage: 10MG DAILY, PO
     Route: 048
     Dates: start: 20030401, end: 20050901
  3. GLIPIZIDE [Concomitant]
  4. WARFARIN [Concomitant]
  5. SIMVASTATIN [Concomitant]
  6. NYSTATIN [Concomitant]
  7. DILTIAZEM HCL [Concomitant]
  8. VICODIN [Concomitant]

REACTIONS (5)
  - ASTHENIA [None]
  - BLOOD CREATININE INCREASED [None]
  - BLOOD POTASSIUM INCREASED [None]
  - FATIGUE [None]
  - HYPERKALIURIA [None]
